FAERS Safety Report 22183713 (Version 2)
Quarter: 2023Q2

REPORT INFORMATION
  Report Type: Spontaneous
  Country: FR (occurrence: FR)
  Receive Date: 20230406
  Receipt Date: 20230501
  Transmission Date: 20230722
  Serious: Yes (Death, Other)
  Sender: FDA-Public Use
  Company Number: FR-INCYTE CORPORATION-2023IN002877

PATIENT

DRUGS (2)
  1. TAFASITAMAB [Suspect]
     Active Substance: TAFASITAMAB
     Indication: Diffuse large B-cell lymphoma
     Dosage: 840 MILLIGRAM, DAY 1, DAY 4, DAY 8, THEN ONCE WEEKLY
     Route: 042
     Dates: start: 20221213, end: 20230221
  2. VERAPAMIL [Concomitant]
     Active Substance: VERAPAMIL HYDROCHLORIDE
     Indication: Arrhythmia
     Dosage: UNK
     Route: 065
     Dates: start: 20220818

REACTIONS (2)
  - Diffuse large B-cell lymphoma [Fatal]
  - Disease progression [Fatal]
